FAERS Safety Report 9720924 (Version 3)
Quarter: 2020Q2

REPORT INFORMATION
  Report Type: Report from Study
  Country: US (occurrence: US)
  Receive Date: 20131129
  Receipt Date: 20200617
  Transmission Date: 20200714
  Serious: Yes (Hospitalization, Other)
  Sender: FDA-Public Use
  Company Number: US-SA-2013SA121627

PATIENT
  Age: 56 Year
  Sex: Female

DRUGS (21)
  1. TERIFLUNOMIDE. [Suspect]
     Active Substance: TERIFLUNOMIDE
     Indication: MULTIPLE SCLEROSIS
     Dosage: 14 MG,QD
     Route: 048
     Dates: start: 201304
  2. TERIFLUNOMIDE. [Suspect]
     Active Substance: TERIFLUNOMIDE
     Dosage: 14 MG,QD
     Route: 048
     Dates: start: 20130822, end: 20170812
  3. TERIFLUNOMIDE. [Suspect]
     Active Substance: TERIFLUNOMIDE
     Dosage: 7 MG,QD
     Route: 048
  4. CENTRUM SILVER [ASCORBIC ACID;BETACAROTENE;BIOTIN;CALCIUM;CHROMIUM;COL [Concomitant]
  5. ZINC. [Concomitant]
     Active Substance: ZINC
  6. AMPYRA [Concomitant]
     Active Substance: DALFAMPRIDINE
  7. MELOXICAM. [Concomitant]
     Active Substance: MELOXICAM
  8. TAMOXIFEN CITRATE. [Concomitant]
     Active Substance: TAMOXIFEN CITRATE
  9. TERIFLUNOMIDE. [Suspect]
     Active Substance: TERIFLUNOMIDE
     Dosage: 14 MG,QD
     Route: 048
  10. CALCIUM CARBONATE. [Concomitant]
     Active Substance: CALCIUM CARBONATE
  11. CRESTOR [Concomitant]
     Active Substance: ROSUVASTATIN CALCIUM
  12. EVENING PRIMROSE OIL [OENOTHERA BIENNIS OIL] [Concomitant]
  13. ETACRYNIC ACID [Concomitant]
     Active Substance: ETHACRYNIC ACID
  14. LEXAPRO [Concomitant]
     Active Substance: ESCITALOPRAM OXALATE
  15. NUVIGIL [Concomitant]
     Active Substance: ARMODAFINIL
  16. STOOL SOFTENER (DOCUSATE) [Concomitant]
     Active Substance: DOCUSATE
  17. IBUPROFEN. [Concomitant]
     Active Substance: IBUPROFEN
  18. MAGNESIUM OXIDE. [Concomitant]
     Active Substance: MAGNESIUM OXIDE
  19. NEURONTIN [Concomitant]
     Active Substance: GABAPENTIN
  20. SYNTHROID [Concomitant]
     Active Substance: LEVOTHYROXINE SODIUM
  21. ERGOCALCIFEROL. [Concomitant]
     Active Substance: ERGOCALCIFEROL

REACTIONS (16)
  - Colitis [Not Recovered/Not Resolved]
  - Urinary tract infection [Recovered/Resolved]
  - Diplopia [Not Recovered/Not Resolved]
  - Sepsis [Recovered/Resolved]
  - Balance disorder [Not Recovered/Not Resolved]
  - Fibula fracture [Unknown]
  - Scratch [Not Recovered/Not Resolved]
  - Confusional state [Recovered/Resolved]
  - Fall [Not Recovered/Not Resolved]
  - Gait disturbance [Recovering/Resolving]
  - Asthenia [Not Recovered/Not Resolved]
  - Arthritis [Not Recovered/Not Resolved]
  - Tibia fracture [Unknown]
  - Sitting disability [Not Recovered/Not Resolved]
  - Condition aggravated [Not Recovered/Not Resolved]
  - Hypoaesthesia [Recovering/Resolving]

NARRATIVE: CASE EVENT DATE: 20131119
